FAERS Safety Report 5680247-7 (Version None)
Quarter: 2008Q1

REPORT INFORMATION
  Report Type: 
  Country: None (occurrence: None)
  Receive Date: 20080326
  Receipt Date: 20080325
  Transmission Date: 20080703
  Serious: Yes (Death, Hospitalization)
  Sender: FDA-Public Use
  Company Number: PHHY2008CA03743

PATIENT
  Sex: Male

DRUGS (1)
  1. RASILEZ [Suspect]
     Route: 048

REACTIONS (2)
  - ANGIOEDEMA [None]
  - DEATH [None]
